FAERS Safety Report 8346086 (Version 14)
Quarter: 2020Q1

REPORT INFORMATION
  Report Type: Report from Study
  Country: CA (occurrence: CA)
  Receive Date: 20120120
  Receipt Date: 20200331
  Transmission Date: 20200409
  Serious: Yes (Hospitalization, Other)
  Sender: FDA-Public Use
  Company Number: PHHY2012CA002870

PATIENT
  Age: 65 Year
  Sex: Female

DRUGS (3)
  1. AMOXI-CLAV [Concomitant]
     Active Substance: AMOXICILLIN\CLAVULANATE POTASSIUM
     Indication: PROPHYLAXIS
     Dosage: UNK
     Route: 065
     Dates: start: 20190211, end: 20190221
  2. SANDOSTATIN LAR DEPOT [Suspect]
     Active Substance: OCTREOTIDE ACETATE
     Indication: NEUROENDOCRINE CARCINOMA
     Dosage: 30 MG, (QMO) EVERY 4 WEEKS
     Route: 030
     Dates: start: 20120109
  3. ATORVASTATIN [Concomitant]
     Active Substance: ATORVASTATIN
     Indication: PRODUCT USED FOR UNKNOWN INDICATION
     Dosage: UNK
     Route: 065
     Dates: start: 2017, end: 2017

REACTIONS (14)
  - Constipation [Recovered/Resolved]
  - Diverticulitis [Unknown]
  - Malaise [Unknown]
  - Injection site pain [Unknown]
  - Injection site extravasation [Unknown]
  - Neoplasm progression [Unknown]
  - Flushing [Unknown]
  - Malignant neoplasm progression [Unknown]
  - Faecaloma [Recovered/Resolved]
  - Blood pressure increased [Unknown]
  - Stress [Unknown]
  - Compulsive shopping [Unknown]
  - Pain [Unknown]
  - Nasopharyngitis [Unknown]

NARRATIVE: CASE EVENT DATE: 20121112
